FAERS Safety Report 14295504 (Version 12)
Quarter: 2018Q3

REPORT INFORMATION
  Report Type: Spontaneous
  Country: US (occurrence: US)
  Receive Date: 20171218
  Receipt Date: 20180706
  Transmission Date: 20181010
  Serious: Yes (Hospitalization, Other)
  Sender: FDA-Public Use
  Company Number: US-PFIZER INC-2017526871

PATIENT
  Age: 75 Year
  Sex: Female
  Weight: 67 kg

DRUGS (8)
  1. IBRANCE [Suspect]
     Active Substance: PALBOCICLIB
     Dosage: 125 MG, CYCLIC (21 DAY ON AND 7 DAYS OFF)
     Route: 048
  2. ZOMETA [Concomitant]
     Active Substance: ZOLEDRONIC ACID
     Indication: BREAST CANCER METASTATIC
  3. IBRANCE [Suspect]
     Active Substance: PALBOCICLIB
     Indication: BREAST CANCER METASTATIC
     Dosage: 125 MG, CYCLIC (FOR 21 DAY AND THEN OFF 7 DAYS)
     Route: 048
     Dates: start: 20171204, end: 20171224
  4. FASLODEX [Concomitant]
     Active Substance: FULVESTRANT
     Indication: BONE DISORDER
     Dosage: 500 MG, CYCLIC (ONCE EVERY 28 DAYS, 2 SHOTS, ONE TO EACH BUTTOCKS)
  5. IBRANCE [Suspect]
     Active Substance: PALBOCICLIB
     Dosage: 125 MG, CYCLIC (FOR 21 DAY AND THEN OFF 7 DAYS)
     Route: 048
     Dates: start: 20171204
  6. ATORVASTATIN [Concomitant]
     Active Substance: ATORVASTATIN
     Indication: BLOOD CHOLESTEROL ABNORMAL
     Dosage: 20 MG, 1X/DAY
  7. ZOMETA [Concomitant]
     Active Substance: ZOLEDRONIC ACID
     Indication: BONE DISORDER
     Dosage: 3.5 ML, CYCLIC (VIA INFUSION ONCE EVERY 28 DAY CYCLE)
     Dates: start: 20171204
  8. FULVESTRANT. [Concomitant]
     Active Substance: FULVESTRANT
     Indication: BREAST CANCER METASTATIC
     Dosage: 500 MG, UNK (250 MG 2 INTRAMUSCULAR INJECTIONS IN EACH BUTTOCKS TOTAL 500 MG EVERY 28 DAYS)
     Route: 030
     Dates: start: 20171204

REACTIONS (7)
  - Urinary tract infection [Recovered/Resolved]
  - White blood cell count decreased [Unknown]
  - Neutropenia [Unknown]
  - Red blood cell count increased [Recovered/Resolved]
  - Renal disorder [Recovered/Resolved]
  - Neutrophil count decreased [Unknown]
  - Neoplasm progression [Not Recovered/Not Resolved]

NARRATIVE: CASE EVENT DATE: 20171207
